FAERS Safety Report 7060608-4 (Version None)
Quarter: 2010Q4

REPORT INFORMATION
  Report Type: 
  Country: None (occurrence: None)
  Receive Date: 20101025
  Receipt Date: 20101019
  Transmission Date: 20110411
  Serious: Yes (Other)
  Sender: FDA-Public Use
  Company Number: US-PFIZER INC-2010131392

PATIENT
  Sex: Female
  Weight: 63.492 kg

DRUGS (1)
  1. CLEOCIN [Suspect]
     Indication: VAGINITIS BACTERIAL
     Dosage: 100 MG, UNK
     Route: 067
     Dates: start: 20101013, end: 20101013

REACTIONS (1)
  - MUSCLE SPASMS [None]
